FAERS Safety Report 10456906 (Version 1)
Quarter: 2014Q3

REPORT INFORMATION
  Report Type: Spontaneous
  Country: IN (occurrence: None)
  Receive Date: 20140912
  Receipt Date: 20140912
  Transmission Date: 20150326
  Serious: Yes (Hospitalization)
  Sender: FDA-Public Use
  Company Number: FK201403627

PATIENT
  Age: 12 Year
  Sex: Male

DRUGS (2)
  1. CEFTRIAXON (MANUFACTURER UNKNOWN) (CEFTRIAXON-DINATRIUM) (CEFTRIAXON-DINATRIUM) [Suspect]
     Active Substance: CEFTRIAXONE
     Indication: PROPHYLAXIS
     Route: 042
  2. NETILMICIN (NETILMICIN) (NETILMICIN) [Suspect]
     Active Substance: NETILMICIN
     Indication: PROPHYLAXIS
     Route: 042

REACTIONS (7)
  - Irritability [None]
  - Muscle spasms [None]
  - Hypocalcaemia [None]
  - Post procedural complication [None]
  - Joint hyperextension [None]
  - Blood calcium decreased [None]
  - Blood albumin decreased [None]
